FAERS Safety Report 10197686 (Version 1)
Quarter: 2014Q2

REPORT INFORMATION
  Report Type: Spontaneous
  Country: US (occurrence: US)
  Receive Date: 20140527
  Receipt Date: 20140527
  Transmission Date: 20141212
  Serious: No
  Sender: FDA-Public Use
  Company Number: US-BRISTOL-MYERS SQUIBB COMPANY-18902023

PATIENT
  Sex: Female

DRUGS (2)
  1. PRAVACHOL [Suspect]
     Dates: end: 201302
  2. METFORMIN [Suspect]

REACTIONS (1)
  - Pregnancy [Unknown]
